FAERS Safety Report 8391582-6 (Version None)
Quarter: 2012Q2

REPORT INFORMATION
  Report Type: 
  Country: None (occurrence: None)
  Receive Date: 20120529
  Receipt Date: 20120523
  Transmission Date: 20120825
  Serious: Yes (Death)
  Sender: FDA-Public Use
  Company Number: PHEH2012US008633

PATIENT
  Sex: Male

DRUGS (18)
  1. PROPOXYPHENE HYDROCHLORIDE [Concomitant]
     Dosage: 1 DF,
  2. DOCUSATE SODIUM [Concomitant]
     Dosage: 100 MG, BID
  3. FLOVENT [Concomitant]
     Dosage: INHALE INTO LUNGS 2 TIMES DAILY
  4. ULORIC [Concomitant]
     Dosage: 1 DF,
  5. LASIX [Concomitant]
     Dosage: 40 MG, BID
  6. TASIGNA [Suspect]
     Indication: CHRONIC MYELOID LEUKAEMIA
     Dosage: 200 MG, BID
     Route: 048
     Dates: start: 20100915
  7. ALBUTEROL [Concomitant]
     Dosage: 90 UG,
  8. COREG [Concomitant]
     Dosage: 3.125 MG, BID
  9. OMEPRAZOLE [Concomitant]
     Dosage: 20 MG,
  10. TASIGNA [Suspect]
     Dosage: 400 MG, BID
     Dates: start: 20101027, end: 20120306
  11. DIABETA [Concomitant]
     Dosage: 5 MG, BID
  12. ZEMPLAR [Concomitant]
     Dosage: 1 DF,
  13. FLOMAX [Concomitant]
     Dosage: 0.4 MG, BID
  14. PRADAXA [Concomitant]
     Dosage: 75 MG, BID
  15. VENTOLIN [Concomitant]
     Dosage: INHALE 2 PUFFS INTO THE LUNGS
  16. NEXIUM [Concomitant]
     Dosage: 1 DF,
  17. AVODART [Concomitant]
     Dosage: 0.5 MG,
  18. SIMVASTATIN [Concomitant]
     Dosage: 40 MG,

REACTIONS (1)
  - CARDIAC DISORDER [None]
